FAERS Safety Report 19160803 (Version 1)
Quarter: 2021Q2

REPORT INFORMATION
  Report Type: Other
  Country: US (occurrence: US)
  Receive Date: 20210421
  Receipt Date: 20210421
  Transmission Date: 20210717
  Serious: Yes (Life-Threatening, Other)
  Sender: FDA-Public Use
  Company Number: US-ROCHE-2808565

PATIENT
  Age: 22 Year
  Sex: Female
  Weight: 56.75 kg

DRUGS (1)
  1. OCREVUS [Suspect]
     Active Substance: OCRELIZUMAB
     Indication: RELAPSING MULTIPLE SCLEROSIS
     Dosage: ONGOING UNKNOWN
     Route: 042
     Dates: start: 202006

REACTIONS (3)
  - Primary progressive multiple sclerosis [Unknown]
  - Thrombosis [Unknown]
  - Fungal infection [Unknown]

NARRATIVE: CASE EVENT DATE: 20200729
